FAERS Safety Report 13532600 (Version 2)
Quarter: 2017Q2

REPORT INFORMATION
  Report Type: Spontaneous
  Country: NL (occurrence: NL)
  Receive Date: 20170510
  Receipt Date: 20170516
  Transmission Date: 20170830
  Serious: Yes (Congenital Anomaly)
  Sender: FDA-Public Use
  Company Number: NL-ABBVIE-17P-114-1970366-00

PATIENT
  Age: 0 Day
  Sex: Female

DRUGS (1)
  1. DEPAKINE ENTERIC [Suspect]
     Active Substance: VALPROATE SODIUM
     Indication: EXPOSURE VIA FATHER
     Route: 050

REACTIONS (2)
  - Congenital hearing disorder [Not Recovered/Not Resolved]
  - Exposure via father [Unknown]

NARRATIVE: CASE EVENT DATE: 19970715
